FAERS Safety Report 6326269-4 (Version None)
Quarter: 2009Q3

REPORT INFORMATION
  Report Type: 
  Country: None (occurrence: None)
  Receive Date: 20090821
  Receipt Date: 20090811
  Transmission Date: 20100115
  Serious: Yes (Hospitalization)
  Sender: FDA-Public Use
  Company Number: 8050248

PATIENT
  Age: 42 Year
  Sex: Male
  Weight: 69.5 kg

DRUGS (6)
  1. CIMZIA [Suspect]
  2. LOPERAMIDE [Concomitant]
  3. ESOMEPRAZOLE [Concomitant]
  4. PEDIALYTE [Concomitant]
  5. CHOLESTYRAMINE [Concomitant]
  6. RIFAXIMIN [Concomitant]

REACTIONS (5)
  - DEHYDRATION [None]
  - DIARRHOEA [None]
  - FATIGUE [None]
  - MUSCLE SPASMS [None]
  - RENAL FAILURE ACUTE [None]
